FAERS Safety Report 12693890 (Version 2)
Quarter: 2016Q3

REPORT INFORMATION
  Report Type: Spontaneous
  Country: US (occurrence: US)
  Receive Date: 20160829
  Receipt Date: 20160915
  Transmission Date: 20161109
  Serious: No
  Sender: FDA-Public Use
  Company Number: US-PFIZER INC-2016398746

PATIENT
  Age: 62 Year
  Sex: Female

DRUGS (3)
  1. TALWIN [Suspect]
     Active Substance: PENTAZOCINE LACTATE
     Indication: PAIN
     Dosage: UNK
  2. METOPROLOL TARTRATE. [Suspect]
     Active Substance: METOPROLOL TARTRATE
     Dosage: UNK
  3. SOTALOL. [Suspect]
     Active Substance: SOTALOL
     Dosage: UNK

REACTIONS (1)
  - Drug hypersensitivity [Unknown]
